FAERS Safety Report 5265128-5 (Version None)
Quarter: 2007Q1

REPORT INFORMATION
  Report Type: 
  Country: None (occurrence: None)
  Receive Date: 20061121
  Receipt Date: 20061011
  Transmission Date: 20070707
  Serious: No
  Sender: FDA-Public Use
  Company Number: TPA2006A01787

PATIENT
  Age: 76 Year
  Sex: Female
  Weight: 90.7194 kg

DRUGS (6)
  1. RAMELTEON (RAMELTEON) (8 MILLIGRAM, TABLETS) [Suspect]
     Indication: INSOMNIA
     Dosage: SEE IMAGE
     Route: 048
     Dates: start: 20061001, end: 20061001
  2. ACEON [Concomitant]
  3. MULTIVITAMIN [Concomitant]
  4. CALCIUM (CALCIUM) [Concomitant]
  5. FLEXAMINE (ALL OTHER THERAPEUTIC PRODUCTS) [Concomitant]
  6. VALIUM [Concomitant]

REACTIONS (2)
  - DRUG INEFFECTIVE [None]
  - INTENTIONAL OVERDOSE [None]
